FAERS Safety Report 10100516 (Version 1)
Quarter: 2014Q2

REPORT INFORMATION
  Report Type: Spontaneous
  Country: US (occurrence: US)
  Receive Date: 20140423
  Receipt Date: 20140423
  Transmission Date: 20141212
  Serious: Yes (Other)
  Sender: FDA-Public Use
  Company Number: US-GLAXOSMITHKLINE-A1069060A

PATIENT
  Age: 85 Year
  Sex: Female

DRUGS (9)
  1. REQUIP [Suspect]
     Indication: RESTLESS LEGS SYNDROME
     Dosage: 2MG TWICE PER DAY
     Route: 048
     Dates: start: 20090818
  2. OXYCODONE [Concomitant]
  3. TRAMADOL [Concomitant]
  4. SERTRALINE [Concomitant]
  5. FOLIC ACID [Concomitant]
  6. LORAZEPAM [Concomitant]
  7. VESICARE [Concomitant]
  8. ARTHRITIS MEDICATION [Concomitant]
  9. OTC VITAMINS [Concomitant]

REACTIONS (7)
  - Blindness [Recovering/Resolving]
  - Pain in extremity [Unknown]
  - Nightmare [Unknown]
  - Headache [Unknown]
  - Feeling hot [Unknown]
  - Dyskinesia [Unknown]
  - Abasia [Unknown]
